FAERS Safety Report 4816611-5 (Version None)
Quarter: 2005Q4

REPORT INFORMATION
  Report Type: 
  Country: None (occurrence: None)
  Receive Date: 20051028
  Receipt Date: 20051011
  Transmission Date: 20060501
  Serious: Yes (Hospitalization)
  Sender: FDA-Public Use
  Company Number: 2005S1010002

PATIENT
  Age: 79 Year
  Sex: Female
  Weight: 65.7716 kg

DRUGS (10)
  1. FENTANYL [Suspect]
     Indication: PROCEDURAL COMPLICATION
     Dosage: 75 MCG; HR; QOD; TDER
     Route: 062
     Dates: start: 20050930, end: 20051001
  2. FENTANYL [Suspect]
     Indication: SURGICAL PROCEDURE REPEATED
     Dosage: 75 MCG; HR; QOD; TDER
     Route: 062
     Dates: start: 20050930, end: 20051001
  3. FENTANYL [Suspect]
     Indication: PROCEDURAL COMPLICATION
     Dosage: 75 MCG; HR; QOD; TDER
     Route: 062
     Dates: start: 20051003, end: 20051004
  4. FENTANYL [Suspect]
     Indication: SURGICAL PROCEDURE REPEATED
     Dosage: 75 MCG; HR; QOD; TDER
     Route: 062
     Dates: start: 20051003, end: 20051004
  5. FENTANYL [Suspect]
     Indication: PROCEDURAL COMPLICATION
     Dosage: 75 MCG; HR; QOD; TDER
     Route: 062
     Dates: start: 20050707
  6. FENTANYL [Suspect]
     Indication: SURGICAL PROCEDURE REPEATED
     Dosage: 75 MCG; HR; QOD; TDER
     Route: 062
     Dates: start: 20050707
  7. LEVOTHYROXINE SODIUM [Concomitant]
  8. ATENOLOL [Concomitant]
  9. GABAPENTIN [Concomitant]
  10. PARACETAMOL/HYDROCODONE BITARTRATE [Concomitant]

REACTIONS (5)
  - ABASIA [None]
  - INCOHERENT [None]
  - PHARMACEUTICAL PRODUCT COMPLAINT [None]
  - THERAPEUTIC RESPONSE UNEXPECTED WITH DRUG SUBSTITUTION [None]
  - UNRESPONSIVE TO VERBAL STIMULI [None]
